FAERS Safety Report 10075485 (Version 1)
Quarter: 2014Q2

REPORT INFORMATION
  Report Type: Spontaneous
  Country: US (occurrence: US)
  Receive Date: 20140414
  Receipt Date: 20140414
  Transmission Date: 20141212
  Serious: Yes (Hospitalization, Other)
  Sender: FDA-Public Use
  Company Number: US-JNJFOC-20140402027

PATIENT
  Age: 53 Year
  Sex: Male

DRUGS (10)
  1. SANDOZ FENTANYL TRANSDERMAL SYSTEM [Suspect]
     Indication: FLANK PAIN
     Route: 062
  2. PENICILLIN [Suspect]
     Indication: PRODUCT USED FOR UNKNOWN INDICATION
     Route: 065
  3. VICTOZA [Concomitant]
     Indication: DIABETES MELLITUS
     Route: 050
     Dates: start: 201307
  4. METFORMIN [Concomitant]
     Indication: DIABETES MELLITUS
     Route: 048
     Dates: start: 2013
  5. LYRICA [Concomitant]
     Indication: FIBROMYALGIA
     Route: 048
  6. WELCHOL [Concomitant]
     Dosage: UP TO 6 PER DAY
     Route: 048
  7. PROTONIX [Concomitant]
     Indication: DYSPEPSIA
     Route: 048
  8. PERCOCET [Concomitant]
     Indication: BREAKTHROUGH PAIN
     Dosage: AS REQUIRED
     Route: 048
  9. TRAMADOL [Concomitant]
     Indication: BREAKTHROUGH PAIN
     Dosage: AS NECESSARY
     Route: 048
  10. FLECTOR PATCHES [Concomitant]
     Indication: PAIN
     Dosage: AS NECESSARY
     Route: 062

REACTIONS (6)
  - Investigation [Recovered/Resolved]
  - Diabetes mellitus [Unknown]
  - Breakthrough pain [Not Recovered/Not Resolved]
  - Vomiting [Recovered/Resolved]
  - Product adhesion issue [Unknown]
  - Treatment noncompliance [Unknown]
